FAERS Safety Report 10227358 (Version 1)
Quarter: 2014Q2

REPORT INFORMATION
  Report Type: Spontaneous
  Country: US (occurrence: US)
  Receive Date: 20140610
  Receipt Date: 20140610
  Transmission Date: 20141212
  Serious: No
  Sender: FDA-Public Use
  Company Number: US-PFIZER INC-2014153272

PATIENT
  Age: 68 Year
  Sex: Female
  Weight: 70.3 kg

DRUGS (10)
  1. LYRICA [Suspect]
     Indication: BACK PAIN
     Dosage: 50 MG, 2X/DAY
     Route: 048
  2. LYRICA [Suspect]
     Indication: SPINAL COLUMN STENOSIS
  3. NEURONTIN [Concomitant]
     Dosage: 800 MG, 4X/DAY
     Route: 048
  4. ANASTROZOLE [Concomitant]
     Dosage: UNK
  5. CARDIZEM [Concomitant]
     Dosage: UNK
  6. FIBERCON [Concomitant]
     Dosage: UNK
  7. LISINOPRIL [Concomitant]
     Dosage: UNK
  8. OMEPRAZOLE [Concomitant]
     Dosage: 40 MG, 1X/DAY AS DIRECTED
     Route: 048
  9. VENLAFAXINE [Concomitant]
     Dosage: UNK
  10. WARFARIN [Concomitant]
     Dosage: UNK

REACTIONS (1)
  - Drug effect incomplete [Unknown]
